FAERS Safety Report 9420405 (Version 1)
Quarter: 2013Q3

REPORT INFORMATION
  Report Type: Spontaneous
  Country: US (occurrence: US)
  Receive Date: 20130725
  Receipt Date: 20130725
  Transmission Date: 20140515
  Serious: No
  Sender: FDA-Public Use
  Company Number: US-ABBOTT-13P-163-1059077-00

PATIENT
  Sex: Female
  Weight: 61.74 kg

DRUGS (3)
  1. SYNTHROID [Suspect]
     Indication: HYPOTHYROIDISM
     Dosage: UNKNOWN DOSAGE
  2. SYNTHROID [Suspect]
  3. SYNTHROID [Suspect]
     Indication: HYPOTHYROIDISM

REACTIONS (3)
  - Hypersensitivity [Recovered/Resolved]
  - Angioedema [Recovered/Resolved]
  - Urticaria [Recovered/Resolved]
